FAERS Safety Report 6441843-2 (Version None)
Quarter: 2009Q4

REPORT INFORMATION
  Report Type: 
  Country: None (occurrence: None)
  Receive Date: 20091116
  Receipt Date: 20091105
  Transmission Date: 20100525
  Serious: Yes (Other)
  Sender: FDA-Public Use
  Company Number: DE-PFIZER INC-2009293551

PATIENT
  Age: 70 Year
  Sex: Male

DRUGS (8)
  1. TOVIAZ [Suspect]
     Indication: INCONTINENCE
     Dosage: 4 MG, 1X/DAY
     Route: 048
     Dates: start: 20090101
  2. TOVIAZ [Suspect]
     Dosage: 8 MG, 1X/DAY
     Route: 048
     Dates: start: 20090101
  3. TOVIAZ [Suspect]
     Dosage: 4 MG, 2X/DAY
     Route: 048
     Dates: start: 20091001
  4. MICARDIS HCT [Concomitant]
     Indication: HYPERTENSION
     Dosage: 80/12.5 MG
  5. ATACAND [Concomitant]
     Indication: HYPERTENSION
     Dosage: 8 MG
  6. AMLODIPINE [Concomitant]
     Indication: HYPERTENSION
     Dosage: 5 MG
  7. SITAGLIPTIN [Concomitant]
     Dosage: 50/100
  8. MARCUMAR [Concomitant]
     Indication: THROMBOSIS

REACTIONS (2)
  - CIRCULATORY COLLAPSE [None]
  - VERTIGO [None]
